FAERS Safety Report 6746790-4 (Version None)
Quarter: 2010Q2

REPORT INFORMATION
  Report Type: 
  Country: None (occurrence: None)
  Receive Date: 20100528
  Receipt Date: 20091027
  Transmission Date: 20101027
  Serious: No
  Sender: FDA-Public Use
  Company Number: A0813615A

PATIENT
  Age: 16 Year
  Sex: Female

DRUGS (2)
  1. VENTOLIN [Suspect]
     Indication: ASTHMA
     Route: 055
     Dates: start: 20090301
  2. FLOVENT [Concomitant]

REACTIONS (1)
  - DRUG INEFFECTIVE [None]
